FAERS Safety Report 15003481 (Version 2)
Quarter: 2018Q3

REPORT INFORMATION
  Report Type: Spontaneous
  Country: US (occurrence: US)
  Receive Date: 20180613
  Receipt Date: 20180703
  Transmission Date: 20181010
  Serious: Yes (Other)
  Sender: FDA-Public Use
  Company Number: US-AMGEN-USASP2018077409

PATIENT
  Age: 87 Year
  Sex: Female

DRUGS (3)
  1. PROLIA [Suspect]
     Active Substance: DENOSUMAB
     Indication: OSTEOPOROSIS POSTMENOPAUSAL
     Dosage: 60 MG, Q6MO
     Route: 065
  2. VITAMIN D [Concomitant]
     Active Substance: CHOLECALCIFEROL
     Dosage: UNK
  3. CALCIUM [Concomitant]
     Active Substance: CALCIUM
     Dosage: UNK

REACTIONS (15)
  - Tinnitus [Unknown]
  - Shoulder arthroplasty [Unknown]
  - Temporomandibular joint syndrome [Unknown]
  - Cardiac disorder [Not Recovered/Not Resolved]
  - Bone pain [Recovering/Resolving]
  - Muscle spasms [Unknown]
  - Prosthesis user [Unknown]
  - Mastication disorder [Unknown]
  - Ear pain [Unknown]
  - Otorrhoea [Unknown]
  - Housebound [Not Recovered/Not Resolved]
  - Bone loss [Unknown]
  - Alopecia [Unknown]
  - Hip arthroplasty [Unknown]
  - Pain in jaw [Unknown]

NARRATIVE: CASE EVENT DATE: 2018
